FAERS Safety Report 9412353 (Version 1)
Quarter: 2013Q3

REPORT INFORMATION
  Report Type: Spontaneous
  Country: US (occurrence: US)
  Receive Date: 20130722
  Receipt Date: 20130722
  Transmission Date: 20140515
  Serious: No
  Sender: FDA-Public Use
  Company Number: US-TEVA-418115USA

PATIENT
  Age: 68 Year
  Sex: Male

DRUGS (1)
  1. PROAIR HFA [Suspect]

REACTIONS (7)
  - Pruritus [Unknown]
  - Nervousness [Unknown]
  - Rash [Unknown]
  - Heart rate increased [Unknown]
  - Hypotension [Unknown]
  - Heart rate decreased [Unknown]
  - Dysuria [Unknown]
